FAERS Safety Report 25719720 (Version 1)
Quarter: 2025Q3

REPORT INFORMATION
  Report Type: Spontaneous
  Country: CA (occurrence: CA)
  Receive Date: 20250825
  Receipt Date: 20250825
  Transmission Date: 20251021
  Serious: Yes (Death, Other)
  Sender: BRISTOL-MYERS SQUIBB COMPANY
  Company Number: CA-BRISTOL-MYERS SQUIBB COMPANY-2025-117203

PATIENT
  Age: 44 Year
  Sex: Female

DRUGS (459)
  1. ORENCIA [Suspect]
     Active Substance: ABATACEPT
     Indication: Rheumatoid arthritis
     Route: 058
  2. ORENCIA [Suspect]
     Active Substance: ABATACEPT
     Route: 058
  3. ORENCIA [Suspect]
     Active Substance: ABATACEPT
     Route: 058
  4. ORENCIA [Suspect]
     Active Substance: ABATACEPT
     Route: 058
  5. ORENCIA [Suspect]
     Active Substance: ABATACEPT
     Route: 058
  6. ORENCIA [Suspect]
     Active Substance: ABATACEPT
     Route: 058
  7. ORENCIA [Suspect]
     Active Substance: ABATACEPT
     Route: 058
  8. ORENCIA [Suspect]
     Active Substance: ABATACEPT
     Route: 058
  9. ORENCIA [Suspect]
     Active Substance: ABATACEPT
     Route: 058
  10. ORENCIA [Suspect]
     Active Substance: ABATACEPT
     Route: 058
  11. ORENCIA [Suspect]
     Active Substance: ABATACEPT
     Route: 058
  12. ORENCIA [Suspect]
     Active Substance: ABATACEPT
     Route: 058
  13. ORENCIA [Suspect]
     Active Substance: ABATACEPT
     Route: 058
  14. ORENCIA [Suspect]
     Active Substance: ABATACEPT
     Indication: Rheumatoid arthritis
     Route: 042
  15. ORENCIA [Suspect]
     Active Substance: ABATACEPT
     Route: 042
  16. ORENCIA [Suspect]
     Active Substance: ABATACEPT
     Route: 042
  17. ORENCIA [Suspect]
     Active Substance: ABATACEPT
     Route: 042
  18. ORENCIA [Suspect]
     Active Substance: ABATACEPT
     Route: 041
  19. ORENCIA [Suspect]
     Active Substance: ABATACEPT
     Route: 042
  20. ORENCIA [Suspect]
     Active Substance: ABATACEPT
     Route: 042
  21. ORENCIA [Suspect]
     Active Substance: ABATACEPT
     Route: 041
  22. ORENCIA [Suspect]
     Active Substance: ABATACEPT
     Indication: Rheumatoid arthritis
  23. ORENCIA [Suspect]
     Active Substance: ABATACEPT
     Route: 015
  24. ORENCIA [Suspect]
     Active Substance: ABATACEPT
     Route: 048
  25. ORENCIA [Suspect]
     Active Substance: ABATACEPT
     Route: 048
  26. ORENCIA [Suspect]
     Active Substance: ABATACEPT
  27. ORENCIA [Suspect]
     Active Substance: ABATACEPT
     Route: 048
  28. TRIAMCINOLONE ACETONIDE [Suspect]
     Active Substance: TRIAMCINOLONE ACETONIDE
     Indication: Rheumatoid arthritis
     Route: 014
  29. ACETAMINOPHEN [Concomitant]
     Active Substance: ACETAMINOPHEN
     Indication: Rheumatoid arthritis
  30. ACETAMINOPHEN [Concomitant]
     Active Substance: ACETAMINOPHEN
     Indication: Pyrexia
  31. ACETAMINOPHEN [Concomitant]
     Active Substance: ACETAMINOPHEN
     Indication: Pain
  32. ACETAMINOPHEN AND CODEINE [Concomitant]
     Active Substance: ACETAMINOPHEN\CODEINE PHOSPHATE
     Indication: Product used for unknown indication
  33. ACTEMRA [Concomitant]
     Active Substance: TOCILIZUMAB
     Indication: Rheumatoid arthritis
     Route: 042
  34. ACTEMRA [Concomitant]
     Active Substance: TOCILIZUMAB
     Route: 058
  35. ACTEMRA [Concomitant]
     Active Substance: TOCILIZUMAB
     Route: 042
  36. ACTEMRA [Concomitant]
     Active Substance: TOCILIZUMAB
     Route: 042
  37. ACTEMRA [Concomitant]
     Active Substance: TOCILIZUMAB
     Route: 061
  38. ACTEMRA [Concomitant]
     Active Substance: TOCILIZUMAB
  39. ACTEMRA [Concomitant]
     Active Substance: TOCILIZUMAB
     Route: 058
  40. ACTEMRA [Concomitant]
     Active Substance: TOCILIZUMAB
     Route: 016
  41. ACTEMRA [Concomitant]
     Active Substance: TOCILIZUMAB
     Route: 048
  42. ACTEMRA [Concomitant]
     Active Substance: TOCILIZUMAB
     Route: 042
  43. ACTEMRA [Concomitant]
     Active Substance: TOCILIZUMAB
     Route: 042
  44. ACTEMRA [Concomitant]
     Active Substance: TOCILIZUMAB
     Route: 042
  45. ACTEMRA [Concomitant]
     Active Substance: TOCILIZUMAB
     Route: 048
  46. ACTEMRA [Concomitant]
     Active Substance: TOCILIZUMAB
     Route: 058
  47. ADALIMUMAB [Concomitant]
     Active Substance: ADALIMUMAB
     Indication: Rheumatoid arthritis
     Route: 042
  48. ADALIMUMAB [Concomitant]
     Active Substance: ADALIMUMAB
     Indication: Psoriatic arthropathy
     Route: 058
  49. ADALIMUMAB [Concomitant]
     Active Substance: ADALIMUMAB
     Route: 048
  50. ADALIMUMAB [Concomitant]
     Active Substance: ADALIMUMAB
     Route: 058
  51. ALENDRONATE SODIUM\CHOLECALCIFEROL [Concomitant]
     Active Substance: ALENDRONATE SODIUM\CHOLECALCIFEROL
     Indication: Rheumatoid arthritis
  52. ALENDRONATE SODIUM\CHOLECALCIFEROL [Concomitant]
     Active Substance: ALENDRONATE SODIUM\CHOLECALCIFEROL
     Route: 048
  53. ALENDRONIC ACID [Concomitant]
     Active Substance: ALENDRONIC ACID
     Indication: Rheumatoid arthritis
     Route: 016
  54. ALENDRONIC ACID [Concomitant]
     Active Substance: ALENDRONIC ACID
     Route: 048
  55. ALENDRONIC ACID [Concomitant]
     Active Substance: ALENDRONIC ACID
  56. DICLOFENAC SODIUM [Concomitant]
     Active Substance: DICLOFENAC SODIUM
     Indication: Product used for unknown indication
     Route: 047
  57. DICLOFENAC SODIUM [Concomitant]
     Active Substance: DICLOFENAC SODIUM
  58. DICLOFENAC SODIUM [Concomitant]
     Active Substance: DICLOFENAC SODIUM
     Route: 048
  59. PREDNISONE [Concomitant]
     Active Substance: PREDNISONE
     Indication: Systemic lupus erythematosus
  60. PREDNISONE [Concomitant]
     Active Substance: PREDNISONE
     Indication: Synovitis
     Route: 048
  61. PREDNISONE [Concomitant]
     Active Substance: PREDNISONE
     Indication: Rheumatoid arthritis
  62. PREDNISONE [Concomitant]
     Active Substance: PREDNISONE
     Indication: Psoriatic arthropathy
     Route: 048
  63. PREDNISONE [Concomitant]
     Active Substance: PREDNISONE
     Indication: Pemphigus
     Route: 048
  64. PREDNISONE [Concomitant]
     Active Substance: PREDNISONE
     Indication: Inflammation
  65. PREDNISONE [Concomitant]
     Active Substance: PREDNISONE
     Indication: Bursitis
  66. APREMILAST [Concomitant]
     Active Substance: APREMILAST
     Indication: Product used for unknown indication
  67. APREMILAST [Concomitant]
     Active Substance: APREMILAST
  68. APREPITANT [Concomitant]
     Active Substance: APREPITANT
     Indication: Product used for unknown indication
     Route: 042
  69. APREPITANT [Concomitant]
     Active Substance: APREPITANT
     Route: 048
  70. APREPITANT [Concomitant]
     Active Substance: APREPITANT
  71. APREPITANT [Concomitant]
     Active Substance: APREPITANT
  72. ARAVA [Concomitant]
     Active Substance: LEFLUNOMIDE
     Indication: Rheumatoid arthritis
     Route: 019
  73. ARAVA [Concomitant]
     Active Substance: LEFLUNOMIDE
     Route: 048
  74. ARAVA [Concomitant]
     Active Substance: LEFLUNOMIDE
     Route: 019
  75. ARAVA [Concomitant]
     Active Substance: LEFLUNOMIDE
     Route: 048
  76. ARAVA [Concomitant]
     Active Substance: LEFLUNOMIDE
  77. ASACOL [Concomitant]
     Active Substance: MESALAMINE
     Indication: Product used for unknown indication
  78. BORAGE OIL [Concomitant]
     Active Substance: BORAGE OIL
     Indication: Product used for unknown indication
  79. CALCIUM CARBONATE [Concomitant]
     Active Substance: CALCIUM CARBONATE
     Indication: Product used for unknown indication
  80. CALCIUM GLUBIONATE [Concomitant]
     Active Substance: CALCIUM GLUBIONATE
     Indication: Product used for unknown indication
     Route: 016
  81. CELEBREX [Concomitant]
     Active Substance: CELECOXIB
     Indication: Arthritis
     Route: 048
  82. CELEBREX [Concomitant]
     Active Substance: CELECOXIB
     Route: 048
  83. CELECOXIB [Concomitant]
     Active Substance: CELECOXIB
     Indication: Product used for unknown indication
  84. CELECOXIB [Concomitant]
     Active Substance: CELECOXIB
  85. CELECOXIB [Concomitant]
     Active Substance: CELECOXIB
  86. CERTOLIZUMAB PEGOL [Concomitant]
     Active Substance: CERTOLIZUMAB PEGOL
     Indication: Product used for unknown indication
  87. CETIRIZINE [Concomitant]
     Active Substance: CETIRIZINE HYDROCHLORIDE
     Indication: Rheumatoid arthritis
  88. CETIRIZINE [Concomitant]
     Active Substance: CETIRIZINE HYDROCHLORIDE
     Route: 048
  89. CETIRIZINE [Concomitant]
     Active Substance: CETIRIZINE HYDROCHLORIDE
  90. CETIRIZINE [Concomitant]
     Active Substance: CETIRIZINE HYDROCHLORIDE
     Route: 048
  91. CETIRIZINE [Concomitant]
     Active Substance: CETIRIZINE HYDROCHLORIDE
     Route: 048
  92. CETIRIZINE [Concomitant]
     Active Substance: CETIRIZINE HYDROCHLORIDE
  93. CETIRIZINE [Concomitant]
     Active Substance: CETIRIZINE HYDROCHLORIDE
  94. CETIRIZINE HYDROCHLORIDE [Concomitant]
     Active Substance: CETIRIZINE HYDROCHLORIDE
     Indication: Rheumatoid arthritis
     Route: 048
  95. CETIRIZINE HYDROCHLORIDE [Concomitant]
     Active Substance: CETIRIZINE HYDROCHLORIDE
  96. CETIRIZINE HYDROCHLORIDE [Concomitant]
     Active Substance: CETIRIZINE HYDROCHLORIDE
     Route: 048
  97. CETIRIZINE HYDROCHLORIDE [Concomitant]
     Active Substance: CETIRIZINE HYDROCHLORIDE
  98. CETIRIZINE HYDROCHLORIDE [Concomitant]
     Active Substance: CETIRIZINE HYDROCHLORIDE
     Route: 048
  99. CETIRIZINE HYDROCHLORIDE [Concomitant]
     Active Substance: CETIRIZINE HYDROCHLORIDE
  100. CETIRIZINE HYDROCHLORIDE [Concomitant]
     Active Substance: CETIRIZINE HYDROCHLORIDE
  101. CETIRIZINE HYDROCHLORIDE [Concomitant]
     Active Substance: CETIRIZINE HYDROCHLORIDE
  102. CETIRIZINE HYDROCHLORIDE [Concomitant]
     Active Substance: CETIRIZINE HYDROCHLORIDE
     Route: 048
  103. CETIRIZINE HYDROCHLORIDE [Concomitant]
     Active Substance: CETIRIZINE HYDROCHLORIDE
  104. CETIRIZINE HYDROCHLORIDE [Concomitant]
     Active Substance: CETIRIZINE HYDROCHLORIDE
  105. CHLORAPREP [Concomitant]
     Active Substance: CHLORHEXIDINE GLUCONATE\ISOPROPYL ALCOHOL
     Indication: Product used for unknown indication
     Route: 048
  106. CHLORAPREP [Concomitant]
     Active Substance: CHLORHEXIDINE GLUCONATE\ISOPROPYL ALCOHOL
     Route: 061
  107. CHLORHEXIDINE [Concomitant]
     Active Substance: CHLORHEXIDINE
     Indication: Product used for unknown indication
     Route: 002
  108. CHLORHEXIDINE [Concomitant]
     Active Substance: CHLORHEXIDINE
  109. CHLORHEXIDINE [Concomitant]
     Active Substance: CHLORHEXIDINE
     Route: 061
  110. CHLORHEXIDINE [Concomitant]
     Active Substance: CHLORHEXIDINE
     Route: 048
  111. CHLORHEXIDINE GLUCONATE [Concomitant]
     Active Substance: CHLORHEXIDINE GLUCONATE
     Indication: Product used for unknown indication
     Route: 048
  112. CHLORHEXIDINE GLUCONATE [Concomitant]
     Active Substance: CHLORHEXIDINE GLUCONATE
     Route: 002
  113. CHLORHEXIDINE GLUCONATE [Concomitant]
     Active Substance: CHLORHEXIDINE GLUCONATE
  114. CHLORHEXIDINE GLUCONATE [Concomitant]
     Active Substance: CHLORHEXIDINE GLUCONATE
     Route: 061
  115. CHOLECALCIFEROL [Concomitant]
     Active Substance: CHOLECALCIFEROL
     Indication: Product used for unknown indication
     Route: 016
  116. CIMZIA [Concomitant]
     Active Substance: CERTOLIZUMAB PEGOL
     Indication: Rheumatoid arthritis
  117. CIMZIA [Concomitant]
     Active Substance: CERTOLIZUMAB PEGOL
     Indication: Psoriatic arthropathy
  118. CIMZIA [Concomitant]
     Active Substance: CERTOLIZUMAB PEGOL
     Indication: Psoriasis
     Route: 058
  119. CIMZIA [Concomitant]
     Active Substance: CERTOLIZUMAB PEGOL
     Route: 042
  120. CIMZIA [Concomitant]
     Active Substance: CERTOLIZUMAB PEGOL
     Route: 058
  121. CIMZIA [Concomitant]
     Active Substance: CERTOLIZUMAB PEGOL
     Route: 058
  122. CIMZIA [Concomitant]
     Active Substance: CERTOLIZUMAB PEGOL
     Route: 058
  123. CIMZIA [Concomitant]
     Active Substance: CERTOLIZUMAB PEGOL
     Route: 005
  124. CIMZIA [Concomitant]
     Active Substance: CERTOLIZUMAB PEGOL
     Route: 058
  125. CIMZIA [Concomitant]
     Active Substance: CERTOLIZUMAB PEGOL
     Route: 058
  126. CIMZIA [Concomitant]
     Active Substance: CERTOLIZUMAB PEGOL
     Route: 058
  127. CIMZIA [Concomitant]
     Active Substance: CERTOLIZUMAB PEGOL
     Route: 058
  128. CORTISONE ACETATE [Concomitant]
     Active Substance: CORTISONE ACETATE
     Indication: Rheumatoid arthritis
     Route: 048
  129. CORTISONE ACETATE [Concomitant]
     Active Substance: CORTISONE ACETATE
  130. CORTISONE ACETATE [Concomitant]
     Active Substance: CORTISONE ACETATE
     Route: 061
  131. CORTISONE ACETATE [Concomitant]
     Active Substance: CORTISONE ACETATE
     Route: 050
  132. CORTISONE ACETATE [Concomitant]
     Active Substance: CORTISONE ACETATE
     Route: 048
  133. CORTISONE ACETATE [Concomitant]
     Active Substance: CORTISONE ACETATE
     Route: 061
  134. CORTISONE ACETATE [Concomitant]
     Active Substance: CORTISONE ACETATE
  135. COSENTYX [Concomitant]
     Active Substance: SECUKINUMAB
     Indication: Rheumatoid arthritis
     Route: 005
  136. COSENTYX [Concomitant]
     Active Substance: SECUKINUMAB
     Indication: Psoriatic arthropathy
  137. DESOXIMETASONE [Concomitant]
     Active Substance: DESOXIMETASONE
     Indication: Rheumatoid arthritis
     Route: 048
  138. DESOXIMETASONE [Concomitant]
     Active Substance: DESOXIMETASONE
     Route: 061
  139. DESOXIMETASONE [Concomitant]
     Active Substance: DESOXIMETASONE
  140. DESOXIMETASONE [Concomitant]
     Active Substance: DESOXIMETASONE
     Route: 048
  141. DESOXIMETASONE [Concomitant]
     Active Substance: DESOXIMETASONE
     Route: 003
  142. DESOXIMETASONE [Concomitant]
     Active Substance: DESOXIMETASONE
  143. DESOXIMETASONE [Concomitant]
     Active Substance: DESOXIMETASONE
     Route: 042
  144. DESOXIMETASONE [Concomitant]
     Active Substance: DESOXIMETASONE
     Route: 058
  145. DESOXIMETASONE [Concomitant]
     Active Substance: DESOXIMETASONE
  146. DESOXIMETASONE [Concomitant]
     Active Substance: DESOXIMETASONE
  147. DESOXIMETASONE [Concomitant]
     Active Substance: DESOXIMETASONE
     Route: 048
  148. DICLOFENAC DIETHYLAMINE [Concomitant]
     Active Substance: DICLOFENAC DIETHYLAMINE
     Indication: Product used for unknown indication
  149. DICLOFENAC POTASSIUM [Concomitant]
     Active Substance: DICLOFENAC POTASSIUM
     Indication: Product used for unknown indication
     Route: 048
  150. DICLOFENAC POTASSIUM [Concomitant]
     Active Substance: DICLOFENAC POTASSIUM
  151. DICLOFENAC POTASSIUM [Concomitant]
     Active Substance: DICLOFENAC POTASSIUM
     Route: 050
  152. DICLOFENAC SODIUM [Concomitant]
     Active Substance: DICLOFENAC SODIUM
     Indication: Product used for unknown indication
     Route: 047
  153. DICLOFENAC SODIUM [Concomitant]
     Active Substance: DICLOFENAC SODIUM
     Route: 047
  154. DICLOFENAC SODIUM [Concomitant]
     Active Substance: DICLOFENAC SODIUM
  155. DICLOFENAC SODIUM [Concomitant]
     Active Substance: DICLOFENAC SODIUM
     Route: 058
  156. DICLOFENAC SODIUM [Concomitant]
     Active Substance: DICLOFENAC SODIUM
     Route: 047
  157. DICLOFENAC SODIUM [Concomitant]
     Active Substance: DICLOFENAC SODIUM
  158. DICLOFENAC SODIUM [Concomitant]
     Active Substance: DICLOFENAC SODIUM
  159. DICLOFENAC SODIUM [Concomitant]
     Active Substance: DICLOFENAC SODIUM
  160. DICLOFENAC SODIUM [Concomitant]
     Active Substance: DICLOFENAC SODIUM
     Route: 050
  161. DICLOFENAC SODIUM [Concomitant]
     Active Substance: DICLOFENAC SODIUM
     Route: 048
  162. DILTIAZEM [Concomitant]
     Active Substance: DILTIAZEM
     Indication: Product used for unknown indication
  163. DILTIAZEM HYDROCHLORIDE [Concomitant]
     Active Substance: DILTIAZEM HYDROCHLORIDE
     Indication: Product used for unknown indication
     Route: 042
  164. DILTIAZEM HYDROCHLORIDE [Concomitant]
     Active Substance: DILTIAZEM HYDROCHLORIDE
  165. DOXYCYCLINE [Concomitant]
     Active Substance: DOXYCYCLINE
     Indication: Product used for unknown indication
  166. EMEND [Concomitant]
     Active Substance: APREPITANT
     Indication: Product used for unknown indication
     Route: 042
  167. ENBREL [Concomitant]
     Active Substance: ETANERCEPT
     Indication: Rheumatoid arthritis
     Route: 058
  168. ENBREL [Concomitant]
     Active Substance: ETANERCEPT
     Indication: Psoriatic arthropathy
     Route: 058
  169. ENBREL [Concomitant]
     Active Substance: ETANERCEPT
     Route: 058
  170. ENBREL [Concomitant]
     Active Substance: ETANERCEPT
  171. ENBREL [Concomitant]
     Active Substance: ETANERCEPT
     Route: 058
  172. ENBREL [Concomitant]
     Active Substance: ETANERCEPT
     Route: 058
  173. ENBREL [Concomitant]
     Active Substance: ETANERCEPT
     Route: 058
  174. ENBREL [Concomitant]
     Active Substance: ETANERCEPT
     Route: 058
  175. ENTYVIO [Concomitant]
     Active Substance: VEDOLIZUMAB
     Indication: Product used for unknown indication
  176. ERELZI [Concomitant]
     Active Substance: ETANERCEPT-SZZS
     Indication: Rheumatoid arthritis
     Route: 058
  177. ERELZI [Concomitant]
     Active Substance: ETANERCEPT-SZZS
  178. ERELZI [Concomitant]
     Active Substance: ETANERCEPT-SZZS
     Route: 058
  179. FLUMETHASONE PIVALATE [Concomitant]
     Active Substance: FLUMETHASONE PIVALATE
     Indication: Rheumatoid arthritis
  180. FLUMETHASONE PIVALATE [Concomitant]
     Active Substance: FLUMETHASONE PIVALATE
     Route: 058
  181. FLUMETHASONE PIVALATE [Concomitant]
     Active Substance: FLUMETHASONE PIVALATE
     Route: 003
  182. FOLIC ACID [Concomitant]
     Active Substance: FOLIC ACID
     Indication: Rheumatoid arthritis
  183. FOLIC ACID [Concomitant]
     Active Substance: FOLIC ACID
     Route: 048
  184. FOLIC ACID [Concomitant]
     Active Substance: FOLIC ACID
  185. FOLIC ACID [Concomitant]
     Active Substance: FOLIC ACID
  186. FOLIC ACID [Concomitant]
     Active Substance: FOLIC ACID
  187. FOLIC ACID [Concomitant]
     Active Substance: FOLIC ACID
  188. FOLIC ACID [Concomitant]
     Active Substance: FOLIC ACID
     Route: 048
  189. FOLIC ACID [Concomitant]
     Active Substance: FOLIC ACID
     Route: 048
  190. FOLIC ACID [Concomitant]
     Active Substance: FOLIC ACID
     Route: 048
  191. FOLIC ACID [Concomitant]
     Active Substance: FOLIC ACID
  192. FOLIC ACID [Concomitant]
     Active Substance: FOLIC ACID
  193. FOLIC ACID [Concomitant]
     Active Substance: FOLIC ACID
     Route: 048
  194. FOLIC ACID [Concomitant]
     Active Substance: FOLIC ACID
  195. FOLIC ACID [Concomitant]
     Active Substance: FOLIC ACID
  196. FOLIC ACID [Concomitant]
     Active Substance: FOLIC ACID
  197. FOLIC ACID [Concomitant]
     Active Substance: FOLIC ACID
  198. FOLIC ACID [Concomitant]
     Active Substance: FOLIC ACID
     Route: 016
  199. FOLIC ACID [Concomitant]
     Active Substance: FOLIC ACID
  200. FOLIC ACID [Concomitant]
     Active Substance: FOLIC ACID
  201. FOLIC ACID [Concomitant]
     Active Substance: FOLIC ACID
     Route: 048
  202. FOLIC ACID [Concomitant]
     Active Substance: FOLIC ACID
     Route: 048
  203. FOLIC ACID [Concomitant]
     Active Substance: FOLIC ACID
     Route: 058
  204. FOLIC ACID [Concomitant]
     Active Substance: FOLIC ACID
  205. FOLIC ACID [Concomitant]
     Active Substance: FOLIC ACID
     Route: 048
  206. FOSAMAX [Concomitant]
     Active Substance: ALENDRONATE SODIUM
     Indication: Rheumatoid arthritis
     Route: 048
  207. FOSAMAX [Concomitant]
     Active Substance: ALENDRONATE SODIUM
     Route: 048
  208. FOSAMAX [Concomitant]
     Active Substance: ALENDRONATE SODIUM
  209. GOLIMUMAB [Concomitant]
     Active Substance: GOLIMUMAB
     Indication: Rheumatoid arthritis
  210. GOLIMUMAB [Concomitant]
     Active Substance: GOLIMUMAB
     Route: 058
  211. HUMIRA [Concomitant]
     Active Substance: ADALIMUMAB
     Indication: Rheumatoid arthritis
     Route: 058
  212. HUMIRA [Concomitant]
     Active Substance: ADALIMUMAB
     Indication: Psoriatic arthropathy
     Route: 058
  213. HUMIRA [Concomitant]
     Active Substance: ADALIMUMAB
     Route: 058
  214. HUMIRA [Concomitant]
     Active Substance: ADALIMUMAB
     Route: 057
  215. HUMIRA [Concomitant]
     Active Substance: ADALIMUMAB
     Route: 058
  216. HUMIRA [Concomitant]
     Active Substance: ADALIMUMAB
     Route: 058
  217. HUMIRA [Concomitant]
     Active Substance: ADALIMUMAB
     Route: 058
  218. HUMIRA [Concomitant]
     Active Substance: ADALIMUMAB
  219. HYDROCORTISONE [Concomitant]
     Active Substance: HYDROCORTISONE
     Indication: Rheumatoid arthritis
     Route: 048
  220. HYDROCORTISONE [Concomitant]
     Active Substance: HYDROCORTISONE
  221. HYDROCORTISONE [Concomitant]
     Active Substance: HYDROCORTISONE
     Route: 003
  222. HYDROCORTISONE [Concomitant]
     Active Substance: HYDROCORTISONE
  223. HYDROCORTISONE [Concomitant]
     Active Substance: HYDROCORTISONE
     Route: 058
  224. HYDROCORTISONE [Concomitant]
     Active Substance: HYDROCORTISONE
     Route: 061
  225. HYDROCORTISONE ACETATE [Concomitant]
     Active Substance: HYDROCORTISONE ACETATE
     Indication: Rheumatoid arthritis
  226. HYDROCORTISONE ACETATE [Concomitant]
     Active Substance: HYDROCORTISONE ACETATE
     Route: 058
  227. HYDROCORTISONE ACETATE [Concomitant]
     Active Substance: HYDROCORTISONE ACETATE
     Route: 050
  228. HYDROCORTISONE ACETATE [Concomitant]
     Active Substance: HYDROCORTISONE ACETATE
     Route: 003
  229. HYDROCORTISONE ACETATE [Concomitant]
     Active Substance: HYDROCORTISONE ACETATE
  230. HYDROCORTISONE ACETATE [Concomitant]
     Active Substance: HYDROCORTISONE ACETATE
     Route: 061
  231. HYDROCORTISONE ACETATE [Concomitant]
     Active Substance: HYDROCORTISONE ACETATE
     Route: 048
  232. HYDROCORTISONE ACETATE [Concomitant]
     Active Substance: HYDROCORTISONE ACETATE
  233. HYDROCORTISONE ACETATE [Concomitant]
     Active Substance: HYDROCORTISONE ACETATE
     Route: 048
  234. HYDROCORTISONE BUTYRATE [Concomitant]
     Active Substance: HYDROCORTISONE BUTYRATE
     Indication: Rheumatoid arthritis
  235. HYDROCORTISONE BUTYRATE [Concomitant]
     Active Substance: HYDROCORTISONE BUTYRATE
     Route: 058
  236. HYDROCORTISONE BUTYRATE [Concomitant]
     Active Substance: HYDROCORTISONE BUTYRATE
     Route: 048
  237. HYDROCORTISONE BUTYRATE [Concomitant]
     Active Substance: HYDROCORTISONE BUTYRATE
  238. HYDROCORTISONE BUTYRATE [Concomitant]
     Active Substance: HYDROCORTISONE BUTYRATE
     Route: 050
  239. HYDROCORTISONE SODIUM SUCCINATE [Concomitant]
     Active Substance: HYDROCORTISONE SODIUM SUCCINATE
     Indication: Rheumatoid arthritis
  240. HYDROCORTISONE SODIUM SUCCINATE [Concomitant]
     Active Substance: HYDROCORTISONE SODIUM SUCCINATE
     Route: 048
  241. HYDROCORTISONE SODIUM SUCCINATE [Concomitant]
     Active Substance: HYDROCORTISONE SODIUM SUCCINATE
  242. HYDROXYCHLOROQUINE [Concomitant]
     Active Substance: HYDROXYCHLOROQUINE
     Indication: Rheumatoid arthritis
  243. HYDROXYCHLOROQUINE [Concomitant]
     Active Substance: HYDROXYCHLOROQUINE
  244. HYDROXYCHLOROQUINE [Concomitant]
     Active Substance: HYDROXYCHLOROQUINE
     Route: 048
  245. HYDROXYCHLOROQUINE [Concomitant]
     Active Substance: HYDROXYCHLOROQUINE
  246. HYDROXYCHLOROQUINE [Concomitant]
     Active Substance: HYDROXYCHLOROQUINE
  247. HYDROXYCHLOROQUINE [Concomitant]
     Active Substance: HYDROXYCHLOROQUINE
     Route: 005
  248. HYDROXYCHLOROQUINE [Concomitant]
     Active Substance: HYDROXYCHLOROQUINE
  249. HYDROXYCHLOROQUINE [Concomitant]
     Active Substance: HYDROXYCHLOROQUINE
  250. HYDROXYCHLOROQUINE [Concomitant]
     Active Substance: HYDROXYCHLOROQUINE
     Route: 048
  251. HYDROXYCHLOROQUINE [Concomitant]
     Active Substance: HYDROXYCHLOROQUINE
     Route: 058
  252. HYDROXYCHLOROQUINE [Concomitant]
     Active Substance: HYDROXYCHLOROQUINE
  253. HYDROXYCHLOROQUINE [Concomitant]
     Active Substance: HYDROXYCHLOROQUINE
  254. HYDROXYCHLOROQUINE SULFATE [Concomitant]
     Active Substance: HYDROXYCHLOROQUINE SULFATE
     Indication: Systemic lupus erythematosus
     Route: 048
  255. HYDROXYCHLOROQUINE SULFATE [Concomitant]
     Active Substance: HYDROXYCHLOROQUINE SULFATE
     Indication: Rheumatoid arthritis
  256. HYDROXYCHLOROQUINE SULFATE [Concomitant]
     Active Substance: HYDROXYCHLOROQUINE SULFATE
     Route: 058
  257. HYDROXYCHLOROQUINE SULFATE [Concomitant]
     Active Substance: HYDROXYCHLOROQUINE SULFATE
     Route: 048
  258. HYDROXYCHLOROQUINE SULFATE [Concomitant]
     Active Substance: HYDROXYCHLOROQUINE SULFATE
     Route: 048
  259. HYDROXYCHLOROQUINE SULFATE [Concomitant]
     Active Substance: HYDROXYCHLOROQUINE SULFATE
     Route: 016
  260. HYDROXYCHLOROQUINE SULFATE [Concomitant]
     Active Substance: HYDROXYCHLOROQUINE SULFATE
     Route: 058
  261. HYDROXYCHLOROQUINE SULFATE [Concomitant]
     Active Substance: HYDROXYCHLOROQUINE SULFATE
  262. HYDROXYCHLOROQUINE SULFATE [Concomitant]
     Active Substance: HYDROXYCHLOROQUINE SULFATE
  263. HYDROXYCHLOROQUINE SULFATE [Concomitant]
     Active Substance: HYDROXYCHLOROQUINE SULFATE
     Route: 058
  264. HYDROXYCHLOROQUINE SULFATE [Concomitant]
     Active Substance: HYDROXYCHLOROQUINE SULFATE
     Route: 048
  265. HYDROXYCHLOROQUINE SULFATE [Concomitant]
     Active Substance: HYDROXYCHLOROQUINE SULFATE
     Route: 058
  266. HYDROXYCHLOROQUINE SULFATE [Concomitant]
     Active Substance: HYDROXYCHLOROQUINE SULFATE
  267. HYDROXYCHLOROQUINE SULFATE [Concomitant]
     Active Substance: HYDROXYCHLOROQUINE SULFATE
     Route: 066
  268. HYDROXYCHLOROQUINE SULFATE [Concomitant]
     Active Substance: HYDROXYCHLOROQUINE SULFATE
     Route: 048
  269. HYDROXYCHLOROQUINE SULFATE [Concomitant]
     Active Substance: HYDROXYCHLOROQUINE SULFATE
  270. HYDROXYCHLOROQUINE SULFATE [Concomitant]
     Active Substance: HYDROXYCHLOROQUINE SULFATE
     Route: 048
  271. HYDROXYCHLOROQUINE SULFATE [Concomitant]
     Active Substance: HYDROXYCHLOROQUINE SULFATE
     Route: 048
  272. INFLIXIMAB [Concomitant]
     Active Substance: INFLIXIMAB
     Indication: Rheumatoid arthritis
  273. INFLIXIMAB [Concomitant]
     Active Substance: INFLIXIMAB
     Indication: Psoriatic arthropathy
     Route: 042
  274. INFLIXIMAB [Concomitant]
     Active Substance: INFLIXIMAB
  275. INFLIXIMAB [Concomitant]
     Active Substance: INFLIXIMAB
     Route: 042
  276. ISOPROPYL ALCOHOL [Concomitant]
     Active Substance: ISOPROPYL ALCOHOL
     Indication: Product used for unknown indication
     Route: 061
  277. ISOPROPYL ALCOHOL [Concomitant]
     Active Substance: ISOPROPYL ALCOHOL
     Route: 061
  278. KEVZARA [Concomitant]
     Active Substance: SARILUMAB
     Indication: Product used for unknown indication
  279. LEFLUNOMIDE [Concomitant]
     Active Substance: LEFLUNOMIDE
     Indication: Rheumatoid arthritis
  280. LEFLUNOMIDE [Concomitant]
     Active Substance: LEFLUNOMIDE
     Route: 048
  281. LEFLUNOMIDE [Concomitant]
     Active Substance: LEFLUNOMIDE
     Route: 048
  282. LEFLUNOMIDE [Concomitant]
     Active Substance: LEFLUNOMIDE
     Route: 048
  283. LYRICA [Concomitant]
     Active Substance: PREGABALIN
     Indication: Product used for unknown indication
  284. METHOTREXATE [Concomitant]
     Active Substance: METHOTREXATE
     Indication: Rheumatoid arthritis
     Route: 048
  285. METHOTREXATE [Concomitant]
     Active Substance: METHOTREXATE
     Route: 048
  286. METHOTREXATE [Concomitant]
     Active Substance: METHOTREXATE
     Route: 048
  287. METHOTREXATE [Concomitant]
     Active Substance: METHOTREXATE
     Route: 048
  288. METHOTREXATE [Concomitant]
     Active Substance: METHOTREXATE
     Route: 048
  289. METHOTREXATE [Concomitant]
     Active Substance: METHOTREXATE
     Route: 058
  290. METHOTREXATE [Concomitant]
     Active Substance: METHOTREXATE
  291. METHOTREXATE [Concomitant]
     Active Substance: METHOTREXATE
     Route: 048
  292. METHOTREXATE [Concomitant]
     Active Substance: METHOTREXATE
     Route: 048
  293. METHOTREXATE [Concomitant]
     Active Substance: METHOTREXATE
     Route: 058
  294. METHOTREXATE [Concomitant]
     Active Substance: METHOTREXATE
     Route: 048
  295. METHOTREXATE [Concomitant]
     Active Substance: METHOTREXATE
     Route: 048
  296. METHOTREXATE [Concomitant]
     Active Substance: METHOTREXATE
     Route: 048
  297. METHOTREXATE [Concomitant]
     Active Substance: METHOTREXATE
     Route: 058
  298. METHOTREXATE [Concomitant]
     Active Substance: METHOTREXATE
     Route: 048
  299. METHOTREXATE [Concomitant]
     Active Substance: METHOTREXATE
     Route: 048
  300. METHOTREXATE [Concomitant]
     Active Substance: METHOTREXATE
  301. METHOTREXATE [Concomitant]
     Active Substance: METHOTREXATE
     Route: 048
  302. METHOTREXATE [Concomitant]
     Active Substance: METHOTREXATE
     Route: 048
  303. METHOTREXATE [Concomitant]
     Active Substance: METHOTREXATE
  304. METHOTREXATE [Concomitant]
     Active Substance: METHOTREXATE
     Route: 048
  305. METHOTREXATE [Concomitant]
     Active Substance: METHOTREXATE
  306. METHOTREXATE [Concomitant]
     Active Substance: METHOTREXATE
     Route: 013
  307. METHOTREXATE [Concomitant]
     Active Substance: METHOTREXATE
     Route: 048
  308. METHOTREXATE [Concomitant]
     Active Substance: METHOTREXATE
     Route: 048
  309. METHOTREXATE [Concomitant]
     Active Substance: METHOTREXATE
     Route: 048
  310. METHOTREXATE [Concomitant]
     Active Substance: METHOTREXATE
     Route: 013
  311. METHOTREXATE [Concomitant]
     Active Substance: METHOTREXATE
     Route: 058
  312. METHOTREXATE [Concomitant]
     Active Substance: METHOTREXATE
     Route: 013
  313. METHOTREXATE [Concomitant]
     Active Substance: METHOTREXATE
     Route: 058
  314. METHOTREXATE [Concomitant]
     Active Substance: METHOTREXATE
  315. METHOTREXATE [Concomitant]
     Active Substance: METHOTREXATE
     Route: 013
  316. METHOTREXATE [Concomitant]
     Active Substance: METHOTREXATE
     Route: 013
  317. METHOTREXATE [Concomitant]
     Active Substance: METHOTREXATE
  318. METHOTREXATE [Concomitant]
     Active Substance: METHOTREXATE
     Route: 013
  319. METHOTREXATE [Concomitant]
     Active Substance: METHOTREXATE
     Route: 016
  320. METHOTREXATE [Concomitant]
     Active Substance: METHOTREXATE
  321. METHOTREXATE [Concomitant]
     Active Substance: METHOTREXATE
  322. METHOTREXATE [Concomitant]
     Active Substance: METHOTREXATE
     Route: 042
  323. METHOTREXATE [Concomitant]
     Active Substance: METHOTREXATE
  324. METHOTREXATE [Concomitant]
     Active Substance: METHOTREXATE
     Route: 013
  325. METHOTREXATE [Concomitant]
     Active Substance: METHOTREXATE
     Route: 058
  326. METHOTREXATE [Concomitant]
     Active Substance: METHOTREXATE
     Route: 058
  327. METHOTREXATE [Concomitant]
     Active Substance: METHOTREXATE
     Route: 058
  328. METHOTREXATE [Concomitant]
     Active Substance: METHOTREXATE
     Route: 013
  329. METHOTREXATE [Concomitant]
     Active Substance: METHOTREXATE
     Route: 048
  330. METHOTREXATE [Concomitant]
     Active Substance: METHOTREXATE
     Route: 048
  331. METHOTREXATE [Concomitant]
     Active Substance: METHOTREXATE
     Route: 048
  332. METHOTREXATE [Concomitant]
     Active Substance: METHOTREXATE
     Route: 048
  333. METHOTREXATE [Concomitant]
     Active Substance: METHOTREXATE
     Route: 048
  334. METHOTREXATE [Concomitant]
     Active Substance: METHOTREXATE
  335. METHOTREXATE [Concomitant]
     Active Substance: METHOTREXATE
     Route: 048
  336. MOXIFLOXACIN [Concomitant]
     Active Substance: MOXIFLOXACIN
     Indication: Product used for unknown indication
     Route: 058
  337. MYCOPHENOLATE MOFETIL [Concomitant]
     Active Substance: MYCOPHENOLATE MOFETIL
     Indication: Product used for unknown indication
  338. NAPROXEN SODIUM [Concomitant]
     Active Substance: NAPROXEN SODIUM
     Indication: Rheumatoid arthritis
  339. NAPROXEN SODIUM [Concomitant]
     Active Substance: NAPROXEN SODIUM
  340. OTEZLA [Concomitant]
     Active Substance: APREMILAST
     Indication: Product used for unknown indication
  341. OTEZLA [Concomitant]
     Active Substance: APREMILAST
     Route: 048
  342. OTEZLA [Concomitant]
     Active Substance: APREMILAST
     Route: 048
  343. OXYCODONE [Concomitant]
     Active Substance: OXYCODONE
     Indication: Product used for unknown indication
     Route: 042
  344. OXYCODONE [Concomitant]
     Active Substance: OXYCODONE
  345. OXYCODONE HYDROCHLORIDE [Concomitant]
     Active Substance: OXYCODONE HYDROCHLORIDE
     Indication: Product used for unknown indication
  346. OXYCODONE TEREPHTHALATE [Concomitant]
     Active Substance: OXYCODONE TEREPHTHALATE
     Indication: Product used for unknown indication
  347. OXYCODONE TEREPHTHALATE [Concomitant]
     Active Substance: OXYCODONE TEREPHTHALATE
     Route: 016
  348. PANTOPRAZOLE SODIUM [Concomitant]
     Active Substance: PANTOPRAZOLE SODIUM
     Indication: Product used for unknown indication
     Route: 016
  349. PANTOPRAZOLE SODIUM [Concomitant]
     Active Substance: PANTOPRAZOLE SODIUM
  350. PERIOGARD [Concomitant]
     Active Substance: CHLORHEXIDINE GLUCONATE
     Indication: Product used for unknown indication
  351. PERIOGARD [Concomitant]
     Active Substance: CHLORHEXIDINE GLUCONATE
     Route: 002
  352. PERIOGARD [Concomitant]
     Active Substance: CHLORHEXIDINE GLUCONATE
     Route: 048
  353. PERIOGARD [Concomitant]
     Active Substance: CHLORHEXIDINE GLUCONATE
     Route: 016
  354. PHTHALYLSULFATHIAZOLE [Concomitant]
     Active Substance: PHTHALYLSULFATHIAZOLE
     Indication: Rheumatoid arthritis
     Route: 048
  355. PHTHALYLSULFATHIAZOLE [Concomitant]
     Active Substance: PHTHALYLSULFATHIAZOLE
  356. PHTHALYLSULFATHIAZOLE [Concomitant]
     Active Substance: PHTHALYLSULFATHIAZOLE
     Route: 048
  357. PHTHALYLSULFATHIAZOLE [Concomitant]
     Active Substance: PHTHALYLSULFATHIAZOLE
     Route: 048
  358. PHTHALYLSULFATHIAZOLE [Concomitant]
     Active Substance: PHTHALYLSULFATHIAZOLE
     Route: 042
  359. PHTHALYLSULFATHIAZOLE [Concomitant]
     Active Substance: PHTHALYLSULFATHIAZOLE
  360. PHTHALYLSULFATHIAZOLE [Concomitant]
     Active Substance: PHTHALYLSULFATHIAZOLE
  361. PHTHALYLSULFATHIAZOLE [Concomitant]
     Active Substance: PHTHALYLSULFATHIAZOLE
  362. PHTHALYLSULFATHIAZOLE [Concomitant]
     Active Substance: PHTHALYLSULFATHIAZOLE
     Route: 048
  363. PHTHALYLSULFATHIAZOLE [Concomitant]
     Active Substance: PHTHALYLSULFATHIAZOLE
     Route: 048
  364. PHTHALYLSULFATHIAZOLE [Concomitant]
     Active Substance: PHTHALYLSULFATHIAZOLE
  365. PHTHALYLSULFATHIAZOLE [Concomitant]
     Active Substance: PHTHALYLSULFATHIAZOLE
     Route: 048
  366. PHTHALYLSULFATHIAZOLE [Concomitant]
     Active Substance: PHTHALYLSULFATHIAZOLE
     Route: 042
  367. PHTHALYLSULFATHIAZOLE [Concomitant]
     Active Substance: PHTHALYLSULFATHIAZOLE
     Route: 042
  368. PHTHALYLSULFATHIAZOLE [Concomitant]
     Active Substance: PHTHALYLSULFATHIAZOLE
     Route: 016
  369. PREDNISOLONE [Concomitant]
     Active Substance: PREDNISOLONE
     Indication: Product used for unknown indication
     Route: 048
  370. PREDNISONE [Concomitant]
     Active Substance: PREDNISONE
     Indication: Systemic lupus erythematosus
  371. PREDNISONE [Concomitant]
     Active Substance: PREDNISONE
     Indication: Synovitis
     Route: 048
  372. PREDNISONE [Concomitant]
     Active Substance: PREDNISONE
     Indication: Rheumatoid arthritis
     Route: 048
  373. PREDNISONE [Concomitant]
     Active Substance: PREDNISONE
     Indication: Psoriatic arthropathy
     Route: 048
  374. PREDNISONE [Concomitant]
     Active Substance: PREDNISONE
     Indication: Pemphigus
     Route: 048
  375. PREDNISONE [Concomitant]
     Active Substance: PREDNISONE
     Indication: Condition aggravated
     Route: 042
  376. PREDNISONE [Concomitant]
     Active Substance: PREDNISONE
  377. PREDNISONE [Concomitant]
     Active Substance: PREDNISONE
  378. PREDNISONE [Concomitant]
     Active Substance: PREDNISONE
     Route: 048
  379. PREDNISONE [Concomitant]
     Active Substance: PREDNISONE
     Route: 048
  380. PREGABALIN [Concomitant]
     Active Substance: PREGABALIN
     Indication: Product used for unknown indication
  381. PSEUDOEPHEDRINE HYDROCHLORIDE [Concomitant]
     Active Substance: PSEUDOEPHEDRINE HYDROCHLORIDE
     Indication: Rheumatoid arthritis
  382. PSEUDOEPHEDRINE HYDROCHLORIDE [Concomitant]
     Active Substance: PSEUDOEPHEDRINE HYDROCHLORIDE
  383. PSEUDOEPHEDRINE HYDROCHLORIDE [Concomitant]
     Active Substance: PSEUDOEPHEDRINE HYDROCHLORIDE
  384. CETIRIZINE HYDROCHLORIDE [Concomitant]
     Active Substance: CETIRIZINE HYDROCHLORIDE
     Indication: Urticaria
  385. CETIRIZINE HYDROCHLORIDE [Concomitant]
     Active Substance: CETIRIZINE HYDROCHLORIDE
     Indication: Rheumatoid arthritis
  386. CETIRIZINE HYDROCHLORIDE [Concomitant]
     Active Substance: CETIRIZINE HYDROCHLORIDE
     Route: 048
  387. CETIRIZINE HYDROCHLORIDE [Concomitant]
     Active Substance: CETIRIZINE HYDROCHLORIDE
  388. CETIRIZINE HYDROCHLORIDE [Concomitant]
     Active Substance: CETIRIZINE HYDROCHLORIDE
     Route: 016
  389. CETIRIZINE HYDROCHLORIDE [Concomitant]
     Active Substance: CETIRIZINE HYDROCHLORIDE
     Route: 005
  390. CETIRIZINE HYDROCHLORIDE\PSEUDOEPHEDRINE HYDROCHLORIDE [Concomitant]
     Active Substance: CETIRIZINE HYDROCHLORIDE\PSEUDOEPHEDRINE HYDROCHLORIDE
     Indication: Rheumatoid arthritis
  391. CETIRIZINE HYDROCHLORIDE\PSEUDOEPHEDRINE HYDROCHLORIDE [Concomitant]
     Active Substance: CETIRIZINE HYDROCHLORIDE\PSEUDOEPHEDRINE HYDROCHLORIDE
     Route: 048
  392. CETIRIZINE HYDROCHLORIDE\PSEUDOEPHEDRINE HYDROCHLORIDE [Concomitant]
     Active Substance: CETIRIZINE HYDROCHLORIDE\PSEUDOEPHEDRINE HYDROCHLORIDE
  393. CETIRIZINE HYDROCHLORIDE\PSEUDOEPHEDRINE HYDROCHLORIDE [Concomitant]
     Active Substance: CETIRIZINE HYDROCHLORIDE\PSEUDOEPHEDRINE HYDROCHLORIDE
  394. REMICADE [Concomitant]
     Active Substance: INFLIXIMAB
     Indication: Rheumatoid arthritis
     Route: 042
  395. REMICADE [Concomitant]
     Active Substance: INFLIXIMAB
     Route: 058
  396. REMICADE [Concomitant]
     Active Substance: INFLIXIMAB
     Route: 041
  397. REMICADE [Concomitant]
     Active Substance: INFLIXIMAB
     Route: 042
  398. REMICADE [Concomitant]
     Active Substance: INFLIXIMAB
  399. SIMPONI [Concomitant]
     Active Substance: GOLIMUMAB
     Indication: Rheumatoid arthritis
     Route: 058
  400. SIMPONI [Concomitant]
     Active Substance: GOLIMUMAB
     Indication: Psoriatic arthropathy
     Route: 042
  401. SIMPONI [Concomitant]
     Active Substance: GOLIMUMAB
     Route: 052
  402. SIMPONI [Concomitant]
     Active Substance: GOLIMUMAB
  403. SIMPONI [Concomitant]
     Active Substance: GOLIMUMAB
     Route: 058
  404. SULFAMETHOXAZOLE [Concomitant]
     Active Substance: SULFAMETHOXAZOLE
     Indication: Product used for unknown indication
  405. SULFAMETHOXAZOLE\TRIMETHOPRIM [Concomitant]
     Active Substance: SULFAMETHOXAZOLE\TRIMETHOPRIM
     Indication: Product used for unknown indication
  406. SULFASALAZINE [Concomitant]
     Active Substance: SULFASALAZINE
     Indication: Rheumatoid arthritis
     Route: 048
  407. SULFASALAZINE [Concomitant]
     Active Substance: SULFASALAZINE
  408. SULFASALAZINE [Concomitant]
     Active Substance: SULFASALAZINE
     Route: 048
  409. SULFASALAZINE [Concomitant]
     Active Substance: SULFASALAZINE
     Route: 048
  410. SULFASALAZINE [Concomitant]
     Active Substance: SULFASALAZINE
     Route: 048
  411. SULFASALAZINE [Concomitant]
     Active Substance: SULFASALAZINE
  412. SULFASALAZINE [Concomitant]
     Active Substance: SULFASALAZINE
     Route: 058
  413. SULFASALAZINE [Concomitant]
     Active Substance: SULFASALAZINE
     Route: 048
  414. SULFASALAZINE [Concomitant]
     Active Substance: SULFASALAZINE
     Route: 048
  415. SULFASALAZINE [Concomitant]
     Active Substance: SULFASALAZINE
     Route: 058
  416. SULFASALAZINE [Concomitant]
     Active Substance: SULFASALAZINE
  417. SULFASALAZINE [Concomitant]
     Active Substance: SULFASALAZINE
     Route: 048
  418. SULFASALAZINE [Concomitant]
     Active Substance: SULFASALAZINE
  419. SULFASALAZINE [Concomitant]
     Active Substance: SULFASALAZINE
  420. SULFASALAZINE [Concomitant]
     Active Substance: SULFASALAZINE
     Route: 048
  421. SULFASALAZINE [Concomitant]
     Active Substance: SULFASALAZINE
     Route: 048
  422. SULFASALAZINE [Concomitant]
     Active Substance: SULFASALAZINE
     Route: 048
  423. SULFASALAZINE [Concomitant]
     Active Substance: SULFASALAZINE
     Route: 048
  424. SULFASALAZINE [Concomitant]
     Active Substance: SULFASALAZINE
     Route: 048
  425. SULFASALAZINE [Concomitant]
     Active Substance: SULFASALAZINE
     Route: 048
  426. SULFASALAZINE [Concomitant]
     Active Substance: SULFASALAZINE
     Route: 048
  427. SULFASALAZINE [Concomitant]
     Active Substance: SULFASALAZINE
  428. SULFASALAZINE [Concomitant]
     Active Substance: SULFASALAZINE
     Route: 048
  429. SULFASALAZINE [Concomitant]
     Active Substance: SULFASALAZINE
     Route: 048
  430. SULFASALAZINE [Concomitant]
     Active Substance: SULFASALAZINE
     Route: 048
  431. SULFASALAZINE [Concomitant]
     Active Substance: SULFASALAZINE
  432. SULFASALAZINE [Concomitant]
     Active Substance: SULFASALAZINE
  433. SULFASALAZINE [Concomitant]
     Active Substance: SULFASALAZINE
  434. SULFASALAZINE [Concomitant]
     Active Substance: SULFASALAZINE
  435. SULFASALAZINE [Concomitant]
     Active Substance: SULFASALAZINE
  436. SULFASALAZINE [Concomitant]
     Active Substance: SULFASALAZINE
     Route: 048
  437. SULFASALAZINE [Concomitant]
     Active Substance: SULFASALAZINE
  438. SULFASALAZINE [Concomitant]
     Active Substance: SULFASALAZINE
     Route: 048
  439. SULFASALAZINE [Concomitant]
     Active Substance: SULFASALAZINE
     Route: 048
  440. SULFASALAZINE [Concomitant]
     Active Substance: SULFASALAZINE
     Route: 048
  441. SULFADIAZINE\TRIMETHOPRIM [Concomitant]
     Active Substance: SULFADIAZINE\TRIMETHOPRIM
     Indication: Product used for unknown indication
     Route: 067
  442. TOPICORT [Concomitant]
     Active Substance: DESOXIMETASONE
     Indication: Rheumatoid arthritis
     Route: 048
  443. TOPICORT [Concomitant]
     Active Substance: DESOXIMETASONE
     Route: 050
  444. TOPICORT [Concomitant]
     Active Substance: DESOXIMETASONE
     Route: 061
  445. TOPICORT [Concomitant]
     Active Substance: DESOXIMETASONE
     Route: 058
  446. VITAMIN C [Concomitant]
     Active Substance: ASCORBIC ACID
     Indication: Product used for unknown indication
  447. VITAMIN C [Concomitant]
     Active Substance: ASCORBIC ACID
  448. VITAMIN C [Concomitant]
     Active Substance: ASCORBIC ACID
     Route: 016
  449. VITAMIN D3 [Concomitant]
     Active Substance: CHOLECALCIFEROL
     Indication: Rheumatoid arthritis
  450. VITAMIN D3 [Concomitant]
     Active Substance: CHOLECALCIFEROL
  451. XELJANZ [Concomitant]
     Active Substance: TOFACITINIB CITRATE
     Indication: Rheumatoid arthritis
  452. XELJANZ [Concomitant]
     Active Substance: TOFACITINIB CITRATE
     Route: 048
  453. XELJANZ [Concomitant]
     Active Substance: TOFACITINIB CITRATE
  454. XELJANZ [Concomitant]
     Active Substance: TOFACITINIB CITRATE
  455. XELJANZ [Concomitant]
     Active Substance: TOFACITINIB CITRATE
  456. XELJANZ [Concomitant]
     Active Substance: TOFACITINIB CITRATE
     Route: 048
  457. XELJANZ [Concomitant]
     Active Substance: TOFACITINIB CITRATE
  458. XELJANZ [Concomitant]
     Active Substance: TOFACITINIB CITRATE
     Route: 048
  459. XELJANZ [Concomitant]
     Active Substance: TOFACITINIB CITRATE

REACTIONS (1)
  - Death [Fatal]
